FAERS Safety Report 11327367 (Version 10)
Quarter: 2017Q2

REPORT INFORMATION
  Report Type: Spontaneous
  Country: US (occurrence: US)
  Receive Date: 20150731
  Receipt Date: 20170425
  Transmission Date: 20170829
  Serious: Yes (Hospitalization, Other)
  Sender: FDA-Public Use
  Company Number: US-PFIZER INC-2015255946

PATIENT
  Age: 48 Year
  Sex: Male

DRUGS (12)
  1. ATENOLOL AND CHLORTHALIDONE [Concomitant]
     Active Substance: ATENOLOL\CHLORTHALIDONE
     Indication: BLOOD PRESSURE ABNORMAL
     Dosage: 1 DF, 1X/DAY (ATENOLOL: 50MG; CHLORTHALIDONE: 25MG)
     Route: 048
  2. CYCLOBENZAPRINE. [Concomitant]
     Active Substance: CYCLOBENZAPRINE
     Indication: SOMNOLENCE
  3. AMLODIPINE [Concomitant]
     Active Substance: AMLODIPINE BESYLATE
     Indication: BLOOD PRESSURE ABNORMAL
     Dosage: 2.5 MG, 1X/DAY
     Route: 048
  4. LYRICA [Suspect]
     Active Substance: PREGABALIN
     Indication: DIABETIC NEUROPATHY
     Dosage: 200 MG, 2X/DAY (100 MG CAPSULE; 2 CAPSULES 2 TIMES PER DAY)
     Route: 048
  5. GLIMEPIRIDE. [Concomitant]
     Active Substance: GLIMEPIRIDE
     Indication: DIABETES MELLITUS
     Dosage: 2 MG, 2X/DAY
     Route: 048
  6. METFORMIN [Concomitant]
     Active Substance: METFORMIN HYDROCHLORIDE
     Indication: DIABETES MELLITUS
     Dosage: 1000 MG, 2X/DAY (WITH MORNING AND EVENING MEALS 2 TIMES PER DAY)
     Route: 048
  7. MOBIC [Concomitant]
     Active Substance: MELOXICAM
     Indication: MYALGIA
     Dosage: 15 MG, AS NEEDED 1 TIME PER DAY
     Route: 048
  8. LYRICA [Suspect]
     Active Substance: PREGABALIN
     Indication: NEUROPATHY PERIPHERAL
     Dosage: 100 MG, 3X/DAY
     Route: 048
  9. SILVADENE [Concomitant]
     Active Substance: SILVER SULFADIAZINE
     Indication: THERMAL BURN
     Dosage: UNK UNK, 2X/DAY (1/16 INCH ( 1.5 MM) THICK LAYER)
     Route: 061
  10. FUROSEMIDE. [Concomitant]
     Active Substance: FUROSEMIDE
     Indication: OEDEMA PERIPHERAL
     Dosage: 20 MG, AS NEEDED (1 TIME PER DAY)
     Route: 048
  11. LOVASTATIN. [Concomitant]
     Active Substance: LOVASTATIN
     Indication: BLOOD CHOLESTEROL INCREASED
     Dosage: 20 MG, 1X/DAY
     Route: 048
  12. CYCLOBENZAPRINE. [Concomitant]
     Active Substance: CYCLOBENZAPRINE
     Indication: MUSCLE SPASMS
     Dosage: 10 MG, 1X/DAY (AT BEDTIME)
     Route: 048

REACTIONS (7)
  - Renal failure [Recovered/Resolved]
  - Nerve injury [Unknown]
  - Prescribed overdose [Unknown]
  - Pain in extremity [Unknown]
  - Nephrolithiasis [Recovered/Resolved]
  - Lower limb fracture [Not Recovered/Not Resolved]
  - Pain [Unknown]
